FAERS Safety Report 7985364-4 (Version None)
Quarter: 2011Q4

REPORT INFORMATION
  Report Type: 
  Country: None (occurrence: None)
  Receive Date: 20111216
  Receipt Date: 20111213
  Transmission Date: 20120403
  Serious: No
  Sender: FDA-Public Use
  Company Number: JP-JNJFOC-20111204749

PATIENT
  Age: 63 Year
  Sex: Male

DRUGS (3)
  1. RIZABEN [Concomitant]
     Indication: LARYNGITIS
     Route: 048
     Dates: start: 20110901
  2. ZYRTEC [Suspect]
     Route: 048
  3. ZYRTEC [Suspect]
     Indication: LARYNGITIS
     Route: 048
     Dates: start: 20110901, end: 20111019

REACTIONS (1)
  - LIVER DISORDER [None]
